FAERS Safety Report 8866093 (Version 3)
Quarter: 2012Q4

REPORT INFORMATION
  Report Type: 
  Country: IT (occurrence: IT)
  Receive Date: 20121025
  Receipt Date: 20121126
  Transmission Date: 20130627
  Serious: Yes (Life-Threatening)
  Sender: FDA-Public Use
  Company Number: IT-FRI-1000039656

PATIENT
  Age: 75 Year
  Sex: Female

DRUGS (3)
  1. NEBIVOLOL [Suspect]
     Indication: HYPERTENSION
     Dosage: 5 mg
     Route: 048
     Dates: start: 20100101, end: 20120921
  2. CITALOPRAM [Suspect]
     Indication: DEPRESSION
     Dosage: 40 mg
     Route: 048
     Dates: start: 20100101, end: 20120921
  3. COUMADIN [Concomitant]
     Indication: ATRIAL FIBRILLATION
     Route: 048

REACTIONS (3)
  - Presyncope [Recovering/Resolving]
  - Electrocardiogram QT prolonged [Recovering/Resolving]
  - Sinus bradycardia [Recovering/Resolving]
